FAERS Safety Report 9104684 (Version 1)
Quarter: 2013Q1

REPORT INFORMATION
  Report Type: Spontaneous
  Country: US (occurrence: US)
  Receive Date: 20130220
  Receipt Date: 20130220
  Transmission Date: 20140127
  Serious: No
  Sender: FDA-Public Use
  Company Number: US-PFIZER INC-2013063871

PATIENT
  Age: 35 Year
  Sex: Male
  Weight: 72.56 kg

DRUGS (6)
  1. LYRICA [Suspect]
     Indication: NERVE COMPRESSION
     Dosage: 100 MG, 1X/DAY, AT NIGHT
     Route: 048
  2. LYRICA [Suspect]
     Indication: NEURALGIA
  3. TRAMADOL HCL [Suspect]
     Indication: PAIN
     Dosage: TWO TABLETS, AS NEEDED
     Route: 048
  4. METHOCARBAMOL [Suspect]
     Indication: PAIN
     Dosage: 750 MG, 2X/DAY
  5. METHOCARBAMOL [Suspect]
     Indication: HYPOTONIA
  6. CYMBALTA [Suspect]
     Indication: PAIN
     Dosage: 60 MG, 1X/DAY
     Route: 048

REACTIONS (1)
  - Drug ineffective [Unknown]
